FAERS Safety Report 6717997-7 (Version None)
Quarter: 2010Q2

REPORT INFORMATION
  Report Type: 
  Country: None (occurrence: None)
  Receive Date: 20100510
  Receipt Date: 20100505
  Transmission Date: 20101027
  Serious: Yes (Death, Hospitalization, Other)
  Sender: FDA-Public Use
  Company Number: PHHY2010TR26880

PATIENT
  Age: 60 Year
  Sex: Female

DRUGS (1)
  1. EXELON [Suspect]
     Dosage: PATCH 5
     Route: 062

REACTIONS (2)
  - ARRHYTHMIA [None]
  - DEATH [None]
